FAERS Safety Report 5081636-4 (Version None)
Quarter: 2006Q3

REPORT INFORMATION
  Report Type: 
  Country: None (occurrence: None)
  Receive Date: 20060811
  Receipt Date: 20060726
  Transmission Date: 20061208
  Serious: Yes (Other)
  Sender: FDA-Public Use
  Company Number: DE-2006-021441

PATIENT
  Sex: Female

DRUGS (8)
  1. FLUDARA [Suspect]
     Indication: BREAST CANCER METASTATIC
     Dosage: SEE IMAGE
     Dates: start: 19970101, end: 19970201
  2. FLUDARA [Suspect]
     Indication: BREAST CANCER METASTATIC
     Dosage: SEE IMAGE
     Dates: start: 19970611, end: 19970930
  3. TAXOL [Suspect]
     Indication: BREAST CANCER METASTATIC
     Dosage: 300
     Dates: start: 19970112, end: 19970930
  4. FLUOROURACIL [Suspect]
     Indication: BREAST CANCER METASTATIC
     Dosage: SEE IMAGE
     Dates: start: 19970101, end: 19970201
  5. FLUOROURACIL [Suspect]
     Indication: BREAST CANCER METASTATIC
     Dosage: SEE IMAGE
     Dates: start: 19970611, end: 19970930
  6. EPIRUBICIN [Suspect]
     Indication: BREAST CANCER METASTATIC
     Dates: start: 19960601, end: 19970101
  7. MITOMYCIN [Suspect]
     Indication: BREAST CANCER METASTATIC
     Dates: start: 19970201, end: 19970601
  8. VINORELBINE TARTRATE [Suspect]
     Indication: BREAST CANCER METASTATIC
     Dates: start: 19970201, end: 19970601

REACTIONS (4)
  - MALIGNANT NEOPLASM PROGRESSION [None]
  - METASTASES TO LIVER [None]
  - METASTASES TO LUNG [None]
  - PULMONARY EMBOLISM [None]
